FAERS Safety Report 9827722 (Version 3)
Quarter: 2014Q1

REPORT INFORMATION
  Report Type: Spontaneous
  Country: US (occurrence: US)
  Receive Date: 20140117
  Receipt Date: 20140131
  Transmission Date: 20141002
  Serious: Yes (Death, Hospitalization)
  Sender: FDA-Public Use
  Company Number: US-DENDREON CORPORATION-2014PROUSA03452

PATIENT
  Age: 70 Year
  Sex: Male
  Weight: 68.27 kg

DRUGS (12)
  1. PROVENGE [Suspect]
     Indication: PROSTATE CANCER METASTATIC
     Dosage: 250 ML, SINGLE
     Route: 042
     Dates: start: 20131010, end: 20131010
  2. PROVENGE [Suspect]
     Dosage: 250 ML, SINGLE
     Route: 042
     Dates: start: 20131107, end: 20131107
  3. PROVENGE [Suspect]
     Dosage: 250 ML, SINGLE
     Route: 042
     Dates: start: 20131121, end: 20131121
  4. PERCOCET [Concomitant]
     Indication: PAIN
     Dosage: 1 TABLETS, Q 4 HOURS PRN
     Route: 048
     Dates: start: 20131127
  5. XANAX [Concomitant]
     Indication: ANXIETY
     Dosage: 0.5 MG, PRN
     Dates: start: 20131127
  6. CODEINE W/GUAIFENESIN [Concomitant]
     Indication: COUGH
     Dosage: 5 ML, Q 4 HOURS PRN
     Route: 048
     Dates: start: 20131127, end: 20131217
  7. LOVENOX [Concomitant]
     Indication: PRODUCT USED FOR UNKNOWN INDICATION
     Dosage: UNK, QD
     Route: 058
     Dates: start: 20131127
  8. LEXAPRO [Concomitant]
     Indication: PRODUCT USED FOR UNKNOWN INDICATION
     Dosage: UNK, QD
  9. CALCIUM +D [Concomitant]
     Indication: PRODUCT USED FOR UNKNOWN INDICATION
     Dosage: UNK, QD
  10. BISACODYL [Concomitant]
     Indication: CONSTIPATION
     Dosage: 10 MG, HS
     Route: 054
     Dates: start: 20131127
  11. POTASSIUM CHLORIDE [Concomitant]
     Indication: PRODUCT USED FOR UNKNOWN INDICATION
     Dosage: 15 ML, QD
     Route: 048
  12. MULTIVITAMIN [Concomitant]
     Indication: PRODUCT USED FOR UNKNOWN INDICATION

REACTIONS (2)
  - Death [Fatal]
  - Investigation [Unknown]
